FAERS Safety Report 25283197 (Version 1)
Quarter: 2025Q2

REPORT INFORMATION
  Report Type: Spontaneous
  Country: US (occurrence: None)
  Receive Date: 20250507
  Receipt Date: 20250507
  Transmission Date: 20250717
  Serious: Yes (Hospitalization, Disabling, Other)
  Sender: FDA-CTU
  Company Number: None

PATIENT
  Age: 20 Year
  Sex: Male

DRUGS (1)
  1. GADAVIST [Suspect]
     Active Substance: GADOBUTROL
     Dates: start: 20210519

REACTIONS (17)
  - Headache [None]
  - Contrast media toxicity [None]
  - Dissociation [None]
  - Fatigue [None]
  - Muscle spasms [None]
  - Visual impairment [None]
  - Tinnitus [None]
  - Burning sensation [None]
  - Insomnia [None]
  - Mental disorder [None]
  - Urticaria [None]
  - Alanine aminotransferase increased [None]
  - Aspartate aminotransferase increased [None]
  - Cognitive disorder [None]
  - Hypersomnia [None]
  - Arthralgia [None]
  - Muscle twitching [None]

NARRATIVE: CASE EVENT DATE: 20210519
